FAERS Safety Report 5832158-1 (Version None)
Quarter: 2008Q3

REPORT INFORMATION
  Report Type: 
  Country: None (occurrence: None)
  Receive Date: 20080804
  Receipt Date: 20080723
  Transmission Date: 20090109
  Serious: Yes (Hospitalization)
  Sender: FDA-Public Use
  Company Number: GB-AMGEN-UK293825

PATIENT
  Sex: Female
  Weight: 56.6 kg

DRUGS (10)
  1. PANITUMUMAB [Suspect]
     Indication: COLORECTAL CANCER
     Route: 042
     Dates: start: 20080605
  2. IRINOTECAN HCL [Suspect]
     Indication: COLORECTAL CANCER
     Route: 065
     Dates: start: 20080605
  3. ACYCLOVIR [Concomitant]
     Route: 048
     Dates: start: 20080626
  4. BISOPROLOL FUMARATE [Concomitant]
     Route: 048
     Dates: start: 20080603
  5. OMEPRAZOLE [Concomitant]
     Route: 048
     Dates: start: 20070901
  6. FOLIC ACID [Concomitant]
     Route: 048
     Dates: start: 20080201
  7. SIMVASTATIN [Concomitant]
     Route: 048
     Dates: start: 20030101
  8. DICLOFENAC SODIUM [Concomitant]
     Route: 048
     Dates: start: 20080603
  9. MORPHINE SULFATE [Concomitant]
     Route: 048
     Dates: start: 20080603
  10. DEXAMETHASONE [Concomitant]
     Route: 048
     Dates: start: 20080603

REACTIONS (2)
  - DIARRHOEA [None]
  - NEUTROPENIC SEPSIS [None]
